FAERS Safety Report 20934884 (Version 1)
Quarter: 2022Q2

REPORT INFORMATION
  Report Type: Other
  Country: GB (occurrence: GB)
  Receive Date: 20220608
  Receipt Date: 20220608
  Transmission Date: 20220721
  Serious: No
  Sender: FDA-Public Use
  Company Number: None

PATIENT
  Age: 38 Year
  Sex: Female
  Weight: 83 kg

DRUGS (9)
  1. SERTRALINE [Suspect]
     Active Substance: SERTRALINE HYDROCHLORIDE
     Indication: Ill-defined disorder
     Dosage: UNK  IN MORNING
     Route: 065
     Dates: start: 20200625
  2. SERTRALINE [Suspect]
     Active Substance: SERTRALINE HYDROCHLORIDE
     Indication: Depression
     Dosage: UNK
     Route: 065
     Dates: start: 20200810
  3. AMITRIPTYLINE [Concomitant]
     Active Substance: AMITRIPTYLINE
     Indication: Ill-defined disorder
     Dosage: 1 DOSAGE FORM, QD (ONE TO BE TAKEN EACH NIGHT )
     Route: 065
     Dates: start: 20200403
  4. IBUPROFEN [Concomitant]
     Active Substance: IBUPROFEN
     Indication: Ill-defined disorder
     Dosage: UNK UNK, TID (APPLY 3 TIMES/DAY )
     Route: 065
     Dates: start: 20200705, end: 20200715
  5. OMEPRAZOLE [Concomitant]
     Active Substance: OMEPRAZOLE
     Indication: Ill-defined disorder
     Dosage: 1 DOSAGE FORM, QD (CAN TWICE A DAY)
     Route: 065
     Dates: start: 20180726
  6. CALCIUM CARBONATE\SODIUM ALGINATE\SODIUM BICARBONATE [Concomitant]
     Active Substance: CALCIUM CARBONATE\SODIUM ALGINATE\SODIUM BICARBONATE
     Indication: Ill-defined disorder
     Dosage: UNK UNK, QID (2X 5ML SPOON 4 TIMES/DAY )
     Route: 065
     Dates: start: 20200527
  7. PENICILLIN V [Concomitant]
     Active Substance: PENICILLIN V
     Indication: Ill-defined disorder
     Dosage: 2 DOSAGE FORM, QID FOR 7 DAYS
     Route: 065
     Dates: start: 20200810
  8. PENICILLIN V [Concomitant]
     Active Substance: PENICILLIN V
     Indication: Infection
  9. TRAMADOL HCL [Concomitant]
     Active Substance: TRAMADOL HYDROCHLORIDE
     Indication: Ill-defined disorder
     Dosage: 1 DOSAGE FORM, TID (1 TO BE TAKEN THREE TIMES DAILY)
     Route: 065
     Dates: start: 20180726

REACTIONS (1)
  - Swollen tongue [Recovering/Resolving]

NARRATIVE: CASE EVENT DATE: 20200810
